FAERS Safety Report 7504402-6 (Version None)
Quarter: 2011Q2

REPORT INFORMATION
  Report Type: 
  Country: None (occurrence: None)
  Receive Date: 20110525
  Receipt Date: 20110520
  Transmission Date: 20111010
  Serious: Yes (Death)
  Sender: FDA-Public Use
  Company Number: US-ROCHE-778840

PATIENT
  Age: 50 Year
  Sex: Female

DRUGS (3)
  1. PACLITAXEL [Suspect]
     Indication: OVARIAN EPITHELIAL CANCER
     Dosage: OVER 1 HOUR ON DAY 1, 8 AND 15 OF EVERY 3 WEEKS CYCLE.
     Route: 042
     Dates: start: 20100831, end: 20110104
  2. CARBOPLATIN [Suspect]
     Indication: OVARIAN EPITHELIAL CANCER
     Dosage: DOSE: AUC6 ON DAY 1 OF EVERY 3 WEEK CYCLE
     Route: 042
     Dates: start: 20100831, end: 20110104
  3. BEVACIZUMAB [Suspect]
     Indication: OVARIAN EPITHELIAL CANCER
     Dosage: OVER 30 TO 90 MINUTES, ON DAY 1 OF EVERY 3 WEEK CYCLE.
     Route: 042
     Dates: start: 20100831, end: 20110104

REACTIONS (1)
  - SUDDEN DEATH [None]
